FAERS Safety Report 19268265 (Version 2)
Quarter: 2021Q2

REPORT INFORMATION
  Report Type: Spontaneous
  Country: US (occurrence: US)
  Receive Date: 20210517
  Receipt Date: 20210517
  Transmission Date: 20210717
  Serious: No
  Sender: FDA-Public Use
  Company Number: US-HORIZON THERAPEUTICS-HZN-2021-000462

PATIENT
  Sex: Female

DRUGS (2)
  1. TEPEZZA [Suspect]
     Active Substance: TEPROTUMUMAB-TRBW
     Indication: PRODUCT USED FOR UNKNOWN INDICATION
     Dosage: UNK, FIRST INFUSION
     Route: 065
     Dates: start: 20200721
  2. TEPEZZA [Suspect]
     Active Substance: TEPROTUMUMAB-TRBW
     Dosage: UNK, LAST INFUSION
     Route: 065
     Dates: start: 20201214

REACTIONS (5)
  - Therapy non-responder [Unknown]
  - Diarrhoea [Recovered/Resolved]
  - Alopecia [Unknown]
  - Taste disorder [Recovered/Resolved]
  - Photosensitivity reaction [Recovered/Resolved]
